FAERS Safety Report 21008034 (Version 1)
Quarter: 2022Q2

REPORT INFORMATION
  Report Type: Spontaneous
  Country: US (occurrence: US)
  Receive Date: 20220627
  Receipt Date: 20220627
  Transmission Date: 20220721
  Serious: No
  Sender: FDA-Public Use
  Company Number: US-009507513-2206USA002841

PATIENT
  Age: 75 Year
  Sex: Female

DRUGS (14)
  1. VERQUVO [Suspect]
     Active Substance: VERICIGUAT
     Indication: Cardiac failure congestive
     Dosage: 2.5MG/1X DAILY
     Route: 048
     Dates: start: 202205
  2. GLIPIZIDE [Concomitant]
     Active Substance: GLIPIZIDE
  3. FUROSEMIDE [Concomitant]
     Active Substance: FUROSEMIDE
     Dosage: 160 MILLIGRAM, QD (2 X DAILY)
  4. CARVEDILOL [Concomitant]
     Active Substance: CARVEDILOL
     Dosage: 12.5 MILLIGRAM, QD (2 X DAILY)
  5. K TAB [Concomitant]
     Dosage: ONCE DAILY
  6. ASPIRIN [Concomitant]
     Active Substance: ASPIRIN
  7. APIXABAN [Concomitant]
     Active Substance: APIXABAN
     Dosage: 5 MILLIGRAM, QD (2X DAILY)
  8. FAMOTIDINE [Concomitant]
     Active Substance: FAMOTIDINE
     Dosage: ONCE DAILY
  9. PREGABALIN [Concomitant]
     Active Substance: PREGABALIN
     Dosage: 225 MILLIGRAM, QD (3X DAILY)
  10. PROBIOTICS NOS [Concomitant]
     Active Substance: PROBIOTICS NOS
  11. VITAMIN D3 [Concomitant]
     Active Substance: CHOLECALCIFEROL
     Dosage: DAILY
  12. ACETAMINOPHEN\HYDROCODONE [Concomitant]
     Active Substance: ACETAMINOPHEN\HYDROCODONE
     Dosage: 1 DOSAGE FORM, QD (1X DAILY)
  13. FIBER CAPS [Concomitant]
     Active Substance: CALCIUM POLYCARBOPHIL
     Dosage: 2 DOSAGE FORM, QD (2X DAILY)
  14. MAGNESIUM [Concomitant]
     Active Substance: MAGNESIUM
     Dosage: AS NEED

REACTIONS (5)
  - Tremor [Recovering/Resolving]
  - Blood glucose increased [Recovering/Resolving]
  - Eye irritation [Recovering/Resolving]
  - Product dose omission issue [Unknown]
  - Product use issue [Unknown]

NARRATIVE: CASE EVENT DATE: 20220601
